FAERS Safety Report 7659090-5 (Version None)
Quarter: 2011Q3

REPORT INFORMATION
  Report Type: 
  Country: None (occurrence: None)
  Receive Date: 20110805
  Receipt Date: 20110801
  Transmission Date: 20111222
  Serious: Yes (Death, Hospitalization)
  Sender: FDA-Public Use
  Company Number: US-ELI_LILLY_AND_COMPANY-US201106003081

PATIENT
  Sex: Male

DRUGS (1)
  1. GEMZAR [Suspect]
     Dosage: UNK UNK, UNKNOWN
     Route: 042
     Dates: start: 20110211

REACTIONS (6)
  - NAUSEA [None]
  - VOMITING [None]
  - MENTAL STATUS CHANGES [None]
  - DEATH [None]
  - GASTRIC ATONY [None]
  - DEHYDRATION [None]
